FAERS Safety Report 8764528 (Version 2)
Quarter: 2012Q4

REPORT INFORMATION
  Report Type: 
  Country: US (occurrence: US)
  Receive Date: 20120831
  Receipt Date: 20121226
  Transmission Date: 20130627
  Serious: Yes (Life-Threatening, Hospitalization, Disabling, Other)
  Sender: FDA-Public Use
  Company Number: US-009507513-1203USA04036

PATIENT

DRUGS (7)
  1. FOSAMAX [Suspect]
     Indication: OSTEOPOROSIS
     Dosage: 10 mg, UNK
     Route: 048
     Dates: start: 199908, end: 2001
  2. FOSAMAX [Suspect]
     Dosage: 70 mg, UNK
     Route: 048
     Dates: start: 2001, end: 2009
  3. CALCIUM (UNSPECIFIED) [Concomitant]
     Indication: OSTEOPOROSIS
     Dosage: 600 mg, bid
     Dates: start: 2008
  4. VITAMIN D (UNSPECIFIED) [Concomitant]
     Indication: OSTEOPOROSIS
     Dosage: 400 IU, bid
     Dates: start: 2008
  5. UNITHROID [Concomitant]
     Indication: HYPOTHYROIDISM
     Dosage: UNK
     Dates: start: 200106
  6. SYNTHROID [Concomitant]
     Indication: HYPOTHYROIDISM
     Dosage: UNK
     Dates: start: 20021201
  7. CLARINEX (DESLORATADINE) [Concomitant]
     Indication: HYPERSENSITIVITY
     Dosage: UNK
     Dates: start: 200311

REACTIONS (30)
  - Intramedullary rod insertion [Unknown]
  - Intramedullary rod insertion [Unknown]
  - Wrist fracture [Unknown]
  - Toe operation [Unknown]
  - Neck surgery [Unknown]
  - Bipolar I disorder [Not Recovered/Not Resolved]
  - Femur fracture [Unknown]
  - Femur fracture [Unknown]
  - Femur fracture [Unknown]
  - Foot fracture [Unknown]
  - Wrist fracture [Unknown]
  - Wrist fracture [Unknown]
  - Road traffic accident [Unknown]
  - Fractured coccyx [Unknown]
  - Sternal fracture [Unknown]
  - Intervertebral disc degeneration [Unknown]
  - Adverse event [Unknown]
  - Balance disorder [Unknown]
  - Anxiety [Unknown]
  - Pain [Unknown]
  - Blood cholesterol increased [Unknown]
  - Eczema [Unknown]
  - Gastrointestinal disorder [Unknown]
  - Blood potassium abnormal [Unknown]
  - Tooth extraction [Unknown]
  - Intervertebral disc protrusion [Unknown]
  - Urinary tract infection [Unknown]
  - Peripheral vascular disorder [Unknown]
  - Back pain [Not Recovered/Not Resolved]
  - Gastrooesophageal reflux disease [Unknown]
